FAERS Safety Report 19288644 (Version 1)
Quarter: 2021Q2

REPORT INFORMATION
  Report Type: Report from Study
  Country: GB (occurrence: GB)
  Receive Date: 20210522
  Receipt Date: 20210522
  Transmission Date: 20210717
  Serious: Yes (Hospitalization)
  Sender: FDA-Public Use
  Company Number: NVSC2021GB110050

PATIENT
  Sex: Male

DRUGS (1)
  1. HYRIMOZ [Suspect]
     Active Substance: ADALIMUMAB-ADAZ
     Indication: CROHN^S DISEASE
     Dosage: 40 MG, BIW (FORTNIGHTLY)
     Route: 058

REACTIONS (4)
  - Feeling abnormal [Unknown]
  - Renal disorder [Unknown]
  - Product dose omission issue [Unknown]
  - Abscess [Unknown]
